FAERS Safety Report 8061580-0 (Version None)
Quarter: 2012Q1

REPORT INFORMATION
  Report Type: 
  Country: None (occurrence: None)
  Receive Date: 20120122
  Receipt Date: 20111108
  Transmission Date: 20120608
  Serious: Yes (Other)
  Sender: FDA-Public Use
  Company Number: PHFR2011IE04251

PATIENT
  Sex: Female

DRUGS (9)
  1. CLOZARIL [Suspect]
     Dosage: 150 MG/DAY
     Route: 048
     Dates: start: 20110626, end: 20110714
  2. LEVOTHYROXINE SODIUM [Concomitant]
     Indication: HYPOTHYROIDISM
     Dosage: 10 MG, UNK
  3. HALOPERIDOL [Concomitant]
     Indication: SCHIZOPHRENIA
     Dosage: 5 MG/DAY
     Dates: start: 20110101
  4. ARIPIPRAZOLE [Concomitant]
     Indication: SCHIZOPHRENIA
     Dosage: 30 MG, DAILY
  5. ETHINYL ESTRADIOL AND NORETHINDRONE [Concomitant]
     Indication: POLYCYSTIC OVARIES
     Dosage: UNK UKN, UNK
  6. SERTRALINE HYDROCHLORIDE [Concomitant]
     Indication: DEPRESSION
     Dosage: 100 MG, QD, MANE
     Route: 065
     Dates: start: 20110101
  7. PERINDOPRIL [Concomitant]
  8. CLOZARIL [Suspect]
     Indication: SCHIZOPHRENIA
     Dosage: UNK UKN, UNK
     Route: 048
     Dates: start: 20110609
  9. EZETIMIBE [Concomitant]

REACTIONS (11)
  - GASTRIC DISORDER [None]
  - DIARRHOEA [None]
  - ELECTROCARDIOGRAM ABNORMAL [None]
  - SINUS TACHYCARDIA [None]
  - HEART RATE INCREASED [None]
  - EOSINOPHILIA [None]
  - ELECTROCARDIOGRAM T WAVE ABNORMAL [None]
  - BACTERIAL INFECTION [None]
  - VOMITING [None]
  - TACHYCARDIA [None]
  - MYOCARDITIS [None]
